FAERS Safety Report 22354277 (Version 1)
Quarter: 2023Q2

REPORT INFORMATION
  Report Type: Spontaneous
  Country: US (occurrence: US)
  Receive Date: 20230523
  Receipt Date: 20230523
  Transmission Date: 20230722
  Serious: No
  Sender: FDA-Public Use
  Company Number: US-Millicent Holdings Ltd.-MILL20230134

PATIENT
  Sex: Female

DRUGS (3)
  1. FEMRING [Suspect]
     Active Substance: ESTRADIOL ACETATE
     Indication: Hot flush
     Dosage: 0.05 MG / DAY
     Route: 067
     Dates: start: 2023
  2. FEMRING [Suspect]
     Active Substance: ESTRADIOL ACETATE
     Dosage: 0.05 MG / DAY
     Route: 067
     Dates: start: 2022
  3. FEMRING [Suspect]
     Active Substance: ESTRADIOL ACETATE
     Dosage: 0.05 MG / DAY
     Route: 067

REACTIONS (2)
  - Device expulsion [Recovered/Resolved]
  - Product dose omission issue [None]
